FAERS Safety Report 9130768 (Version 2)
Quarter: 2013Q1

REPORT INFORMATION
  Report Type: Spontaneous
  Country: CA (occurrence: CA)
  Receive Date: 20130301
  Receipt Date: 20130315
  Transmission Date: 20140127
  Serious: Yes (Hospitalization, Other)
  Sender: FDA-Public Use
  Company Number: CA-AMGEN-CANSP2013012118

PATIENT
  Age: 69 Year
  Sex: Male

DRUGS (7)
  1. XGEVA [Suspect]
     Indication: LUNG NEOPLASM MALIGNANT
     Dosage: UNK
     Dates: start: 20111108
  2. APO-ATENOLOL [Concomitant]
     Indication: HYPERTENSION
  3. ADALAT [Concomitant]
     Indication: HYPERTENSION
  4. GLICLAZIDE [Concomitant]
     Indication: DIABETES MELLITUS
  5. METFORMIN [Concomitant]
     Indication: DIABETES MELLITUS
  6. CRESTOR [Concomitant]
     Indication: DIABETES MELLITUS
  7. ZANTAC [Concomitant]

REACTIONS (5)
  - Pain [Unknown]
  - Loss of consciousness [Recovered/Resolved]
  - Lower respiratory tract infection [Recovered/Resolved]
  - Influenza [Recovered/Resolved]
  - Dyspnoea [Unknown]
